FAERS Safety Report 4607747-2 (Version None)
Quarter: 2005Q1

REPORT INFORMATION
  Report Type: 
  Country: None (occurrence: None)
  Receive Date: 20050314
  Receipt Date: 20050221
  Transmission Date: 20050727
  Serious: Yes (Life-Threatening, Hospitalization, Disabling, Other)
  Sender: FDA-Public Use
  Company Number: US-GLAXOSMITHKLINE-A0546535A

PATIENT
  Age: 32 Year
  Sex: Female

DRUGS (3)
  1. WELLBUTRIN XL [Suspect]
     Indication: DEPRESSION
     Dosage: 150MG UNKNOWN
     Route: 048
  2. TRAZODONE HCL [Concomitant]
     Dosage: 100MG AT NIGHT
     Route: 065
     Dates: start: 20050216
  3. ULTRACET [Concomitant]
     Dates: start: 20050217

REACTIONS (2)
  - AMNESIA [None]
  - GRAND MAL CONVULSION [None]
